FAERS Safety Report 15692650 (Version 4)
Quarter: 2021Q1

REPORT INFORMATION
  Report Type: Spontaneous
  Country: US (occurrence: US)
  Receive Date: 20181206
  Receipt Date: 20210112
  Transmission Date: 20210419
  Serious: Yes (Disabling, Other)
  Sender: FDA-Public Use
  Company Number: US-AMGEN-USASP2018171721

PATIENT
  Age: 71 Year
  Sex: Female
  Weight: 53.52 kg

DRUGS (3)
  1. PROLIA [Suspect]
     Active Substance: DENOSUMAB
     Indication: OSTEOPOROSIS POSTMENOPAUSAL
     Dosage: 60 MG, Q6MO
     Route: 058
     Dates: start: 20121129, end: 20180726
  2. ENALAPRIL [Concomitant]
     Active Substance: ENALAPRIL
     Indication: HYPERTENSION
     Dosage: 5 MG, QD
     Dates: start: 2017
  3. SIMVASTATIN. [Concomitant]
     Active Substance: SIMVASTATIN
     Indication: HYPERLIPIDAEMIA
     Dosage: 20 MG, QD
     Dates: start: 2018

REACTIONS (2)
  - Gingivitis [Unknown]
  - Osteonecrosis of jaw [Not Recovered/Not Resolved]

NARRATIVE: CASE EVENT DATE: 2018
